FAERS Safety Report 5068262-8 (Version None)
Quarter: 2006Q3

REPORT INFORMATION
  Report Type: 
  Country: None (occurrence: None)
  Receive Date: 20060802
  Receipt Date: 20050629
  Transmission Date: 20061208
  Serious: Yes (Hospitalization)
  Sender: FDA-Public Use
  Company Number: US-BRISTOL-MYERS SQUIBB COMPANY-13019856

PATIENT
  Age: 77 Year
  Sex: Male
  Weight: 80 kg

DRUGS (9)
  1. COUMADIN [Suspect]
     Indication: ATRIAL FIBRILLATION
     Dosage: ROTATING SCHEDULE: DAYS 1 AND 2 - 2.5 MG; DAY 3 - 3.0 MG THEN SCHEDULE REPEATS
  2. TRICOR [Suspect]
     Indication: BLOOD CHOLESTEROL INCREASED
  3. TENORMIN [Concomitant]
  4. PERSANTINE [Concomitant]
  5. XANAX [Concomitant]
  6. SYNTHROID [Concomitant]
  7. ZOLOFT [Concomitant]
     Dosage: DURATION: 2-3 YEARS
  8. ZOCOR [Concomitant]
     Dosage: DURATION: 6-7 YEARS
  9. ASPIRIN [Concomitant]

REACTIONS (4)
  - CEREBROVASCULAR ACCIDENT [None]
  - COUGH [None]
  - HEMIPLEGIA [None]
  - WEIGHT DECREASED [None]
